FAERS Safety Report 9265112 (Version 1)
Quarter: 2013Q2

REPORT INFORMATION
  Report Type: Spontaneous
  Country: US (occurrence: US)
  Receive Date: 20130501
  Receipt Date: 20130501
  Transmission Date: 20140414
  Serious: No
  Sender: FDA-Public Use
  Company Number: US-PFIZER INC-2013130820

PATIENT
  Age: 78 Year
  Sex: Female
  Weight: 77.1 kg

DRUGS (9)
  1. TOVIAZ [Suspect]
     Indication: URINARY INCONTINENCE
     Dosage: 8 MG, 1X/DAY
     Route: 048
     Dates: start: 2012
  2. SYNTHROID [Concomitant]
     Indication: HYPOTHYROIDISM
     Dosage: 100 UG, 1X/DAY
  3. HYDROCHLOROTHIAZIDE [Concomitant]
     Dosage: 12.5 MG, 1X/DAY
  4. HYDROCHLOROTHIAZIDE/TRIAMTERENE [Concomitant]
     Dosage: 37.5/25MG, UNK
  5. TRAMADOL [Concomitant]
     Dosage: 50 MG, 3X/DAY
  6. FOLIC ACID [Concomitant]
     Dosage: 800 UG, 2X/DAY
  7. LIPITOR [Concomitant]
     Dosage: 10 MG, 1X/DAY
  8. WARFARIN [Concomitant]
     Dosage: UNK, 1X/DAY
  9. ACETAMINOPHEN [Concomitant]
     Indication: ARTHRALGIA
     Dosage: 1000 MG (500MG TWO GEL CAPS), AS NEEDED

REACTIONS (1)
  - Drug ineffective [Unknown]
